FAERS Safety Report 10168227 (Version 1)
Quarter: 2014Q2

REPORT INFORMATION
  Report Type: Spontaneous
  Country: US (occurrence: US)
  Receive Date: 20140512
  Receipt Date: 20140512
  Transmission Date: 20141212
  Serious: No
  Sender: FDA-Public Use
  Company Number: HT-ASTRAZENECA-2013SE67599

PATIENT
  Age: 76 Year
  Sex: Female
  Weight: 54.4 kg

DRUGS (9)
  1. FASLODEX [Suspect]
     Indication: NEOPLASM MALIGNANT
     Route: 030
  2. EGIVA [Concomitant]
     Indication: NEOPLASM MALIGNANT
  3. SYNTHROID [Concomitant]
     Indication: THYROID DISORDER
  4. SIMVASTATION [Concomitant]
     Indication: BLOOD CHOLESTEROL
  5. PREDNISONE [Concomitant]
     Indication: GLAUCOMA
  6. TIMILOL [Concomitant]
     Indication: GLAUCOMA
  7. VIT D [Concomitant]
  8. CALCIUM [Concomitant]
  9. CENTRUM SILVER [Concomitant]

REACTIONS (2)
  - Sleep disorder [Unknown]
  - Nausea [Unknown]
